FAERS Safety Report 19069051 (Version 2)
Quarter: 2021Q2

REPORT INFORMATION
  Report Type: Spontaneous
  Country: US (occurrence: US)
  Receive Date: 20210329
  Receipt Date: 20210401
  Transmission Date: 20210717
  Serious: Yes (Life-Threatening)
  Sender: FDA-Public Use
  Company Number: US-PFIZER INC-2021315042

PATIENT
  Age: 58 Year
  Sex: Female

DRUGS (1)
  1. PROPOFOL. [Suspect]
     Active Substance: PROPOFOL
     Indication: SEDATION
     Dosage: INITIATED AT A RATE OF 58 MCG/KG/MIN AND MAINTAINED BETWEEN 58?60 MCG/KG/MIN

REACTIONS (1)
  - Propofol infusion syndrome [Recovered/Resolved]
